FAERS Safety Report 20660078 (Version 1)
Quarter: 2022Q1

REPORT INFORMATION
  Report Type: Spontaneous
  Country: US (occurrence: None)
  Receive Date: 20220331
  Receipt Date: 20220331
  Transmission Date: 20220423
  Serious: No
  Sender: FDA-Public Use
  Company Number: None

PATIENT
  Sex: Female

DRUGS (1)
  1. AJOVY [Suspect]
     Active Substance: FREMANEZUMAB-VFRM
     Indication: Migraine with aura
     Dosage: OTHER QUANTITY : 1 SYRINGE;?FREQUENCY : MONTHLY;?OTHER ROUTE : UNDER THE SKIN;?
     Route: 050
     Dates: start: 202008

REACTIONS (1)
  - Condition aggravated [None]
